FAERS Safety Report 23396056 (Version 10)
Quarter: 2025Q3

REPORT INFORMATION
  Report Type: Report from Study
  Country: CA (occurrence: CA)
  Receive Date: 20240112
  Receipt Date: 20250721
  Transmission Date: 20251020
  Serious: Yes (Hospitalization, Other)
  Sender: TAKEDA
  Company Number: CA-TAKEDA-2023TUS098577

PATIENT
  Sex: Male

DRUGS (18)
  1. VEDOLIZUMAB [Suspect]
     Active Substance: VEDOLIZUMAB
     Indication: Colitis ulcerative
  2. VEDOLIZUMAB [Suspect]
     Active Substance: VEDOLIZUMAB
  3. VEDOLIZUMAB [Suspect]
     Active Substance: VEDOLIZUMAB
     Indication: Colitis ulcerative
     Dosage: 108 MILLIGRAM, Q2WEEKS
     Dates: start: 20240119
  4. VEDOLIZUMAB [Suspect]
     Active Substance: VEDOLIZUMAB
     Dosage: 108 MILLIGRAM, Q2WEEKS
  5. VEDOLIZUMAB [Suspect]
     Active Substance: VEDOLIZUMAB
     Dosage: 108 MILLIGRAM, Q2WEEKS
  6. Cortiment [Concomitant]
     Dosage: 9 MILLIGRAM, QD
     Dates: start: 20230902
  7. INSULIN NOS [Concomitant]
     Active Substance: INSULIN NOS
  8. APIDRA [Concomitant]
     Active Substance: INSULIN GLULISINE
  9. BASAGLAR [Concomitant]
     Active Substance: INSULIN GLARGINE
  10. ASPIRIN [Concomitant]
     Active Substance: ASPIRIN
  11. ASCORBIC ACID\BIOTIN\CALCIUM PANTOTHENATE\CYANOCOBALAMIN\FOLIC ACID\NI [Concomitant]
     Active Substance: ASCORBIC ACID\BIOTIN\CALCIUM PANTOTHENATE\CYANOCOBALAMIN\FOLIC ACID\NIACINAMIDE\PYRIDOXINE HYDROCHLO
  12. IRON [Concomitant]
     Active Substance: IRON
  13. ARANESP [Concomitant]
     Active Substance: DARBEPOETIN ALFA
  14. ATORVASTATIN [Concomitant]
     Active Substance: ATORVASTATIN
  15. BISOPROLOL [Concomitant]
     Active Substance: BISOPROLOL
  16. AMLODIPINE [Concomitant]
     Active Substance: AMLODIPINE BESYLATE
  17. LASIX [Concomitant]
     Active Substance: FUROSEMIDE
  18. SYNTHROID [Concomitant]
     Active Substance: LEVOTHYROXINE SODIUM

REACTIONS (12)
  - Renal failure [Unknown]
  - Cardiac failure congestive [Unknown]
  - Brain fog [Unknown]
  - Illness [Unknown]
  - Suspected COVID-19 [Recovering/Resolving]
  - Influenza like illness [Unknown]
  - Frequent bowel movements [Unknown]
  - Heart rate increased [Recovered/Resolved]
  - Decreased appetite [Recovered/Resolved]
  - Dizziness [Unknown]
  - Blood pressure increased [Recovered/Resolved]
  - Nausea [Recovered/Resolved]
